FAERS Safety Report 5645886-8 (Version None)
Quarter: 2008Q1

REPORT INFORMATION
  Report Type: 
  Country: None (occurrence: None)
  Receive Date: 20080229
  Receipt Date: 20080221
  Transmission Date: 20080703
  Serious: Yes (Hospitalization, Congenital Anomaly)
  Sender: FDA-Public Use
  Company Number: FR-ABBOTT-08P-056-0439784-00

PATIENT
  Sex: Female

DRUGS (10)
  1. DEPAKOTE [Suspect]
     Indication: DEPRESSION
     Dates: end: 20070901
  2. CHLORPROMAZINE HYDROCHLORIDE [Suspect]
     Indication: DRUG USE FOR UNKNOWN INDICATION
     Dates: start: 20070901
  3. FLUOXETINE HYDROCHLORIDE [Suspect]
     Indication: DEPRESSION
     Dates: start: 20070901
  4. ALIMEMAZINE TARTRATE [Suspect]
     Indication: INSOMNIA
  5. OLANZAPINE [Suspect]
     Indication: BIPOLAR DISORDER
     Dates: start: 20070901
  6. MEPRONIZINE [Concomitant]
     Indication: INSOMNIA
     Dates: end: 20070901
  7. DIAZEPAM [Concomitant]
     Indication: ANXIETY
     Dates: end: 20070901
  8. CLONAZEPAM [Concomitant]
     Indication: EPILEPSY
     Dates: end: 20070901
  9. LORMETAZEPAM [Concomitant]
     Indication: INSOMNIA
     Dates: end: 20070901
  10. OXAZEPAM [Concomitant]
     Indication: ANXIETY
     Dates: end: 20070901

REACTIONS (2)
  - DRUG THERAPY CHANGED [None]
  - SUICIDE ATTEMPT [None]
